FAERS Safety Report 8284706-2 (Version None)
Quarter: 2012Q2

REPORT INFORMATION
  Report Type: 
  Country: None (occurrence: None)
  Receive Date: 20120413
  Receipt Date: 20110428
  Transmission Date: 20120825
  Serious: No
  Sender: FDA-Public Use
  Company Number: US-ASTRAZENECA-2010SE19285

PATIENT
  Age: 54 Year
  Sex: Female

DRUGS (8)
  1. NEXIUM [Suspect]
     Indication: GASTROOESOPHAGEAL REFLUX DISEASE
     Route: 048
     Dates: start: 20030101, end: 20030101
  2. NEXIUM [Suspect]
     Route: 048
     Dates: start: 20030101, end: 20030101
  3. NEXIUM [Suspect]
     Route: 048
  4. NEXIUM [Suspect]
     Route: 048
     Dates: start: 20100201, end: 20100201
  5. PREVACID [Concomitant]
  6. NEXIUM [Suspect]
     Route: 048
  7. NEXIUM [Suspect]
     Route: 048
     Dates: start: 20100201, end: 20100201
  8. GABAPENTIN [Concomitant]
     Indication: NEURALGIA

REACTIONS (5)
  - ABDOMINAL DISCOMFORT [None]
  - DRUG INEFFECTIVE [None]
  - ERUCTATION [None]
  - THROAT IRRITATION [None]
  - GASTROOESOPHAGEAL REFLUX DISEASE [None]
